FAERS Safety Report 10314775 (Version 1)
Quarter: 2014Q3

REPORT INFORMATION
  Report Type: Spontaneous
  Country: US (occurrence: US)
  Receive Date: 20140718
  Receipt Date: 20140718
  Transmission Date: 20150326
  Serious: No
  Sender: FDA-Public Use
  Company Number: US-ASTRAZENECA-2014SE51454

PATIENT
  Sex: Female

DRUGS (2)
  1. NEXIUM 24HR [Suspect]
     Active Substance: ESOMEPRAZOLE MAGNESIUM
     Indication: DYSPEPSIA
     Dosage: ?
     Route: 048
     Dates: start: 201406, end: 20140708
  2. NEXIUM 24HR [Suspect]
     Active Substance: ESOMEPRAZOLE MAGNESIUM
     Indication: GASTROOESOPHAGEAL REFLUX DISEASE
     Dosage: ?
     Route: 048
     Dates: start: 201406, end: 20140708

REACTIONS (4)
  - Dry mouth [Unknown]
  - Buccal mucosal roughening [Unknown]
  - Tongue coated [Unknown]
  - Lip dry [Unknown]

NARRATIVE: CASE EVENT DATE: 20140705
